FAERS Safety Report 12122805 (Version 2)
Quarter: 2016Q1

REPORT INFORMATION
  Report Type: Report from Study
  Country: BR (occurrence: BR)
  Receive Date: 20160227
  Receipt Date: 20160229
  Transmission Date: 20160526
  Serious: Yes (Other)
  Sender: FDA-Public Use
  Company Number: BR-ABBVIE-16K-020-1566549-00

PATIENT
  Age: 68 Year
  Sex: Female
  Weight: 65 kg

DRUGS (2)
  1. HUMIRA [Suspect]
     Active Substance: ADALIMUMAB
     Indication: RHEUMATOID ARTHRITIS
     Route: 058
     Dates: start: 20141028
  2. DORMONID [Concomitant]
     Active Substance: MIDAZOLAM MALEATE
     Indication: SLEEP DISORDER THERAPY
     Route: 048
     Dates: start: 201512

REACTIONS (2)
  - Venous thrombosis limb [Not Recovered/Not Resolved]
  - Venous thrombosis limb [Unknown]

NARRATIVE: CASE EVENT DATE: 201512
